FAERS Safety Report 8916719 (Version 1)
Quarter: 2012Q4

REPORT INFORMATION
  Report Type: 
  Country: FR (occurrence: FR)
  Receive Date: 20121120
  Receipt Date: 20121120
  Transmission Date: 20130627
  Serious: Yes (Hospitalization)
  Sender: FDA-Public Use
  Company Number: FR-ROCHE-1157201

PATIENT
  Age: 63 Year
  Sex: Male

DRUGS (6)
  1. AVASTIN [Suspect]
     Indication: LUNG ADENOCARCINOMA
     Route: 042
     Dates: start: 20120801
  2. AVASTIN [Suspect]
     Indication: METASTASES TO PLEURA
     Route: 065
     Dates: start: 20120829
  3. ALIMTA [Concomitant]
     Route: 042
     Dates: start: 20120801
  4. ALIMTA [Concomitant]
     Route: 065
     Dates: start: 20120829
  5. CARBOPLATIN [Concomitant]
     Route: 042
     Dates: start: 20120801
  6. CARBOPLATIN [Concomitant]
     Route: 065
     Dates: start: 20120829

REACTIONS (2)
  - Myocardial infarction [Recovered/Resolved with Sequelae]
  - Acute coronary syndrome [Recovered/Resolved with Sequelae]
